FAERS Safety Report 13836481 (Version 1)
Quarter: 2017Q3

REPORT INFORMATION
  Report Type: Spontaneous
  Country: AU (occurrence: AU)
  Receive Date: 20170804
  Receipt Date: 20170804
  Transmission Date: 20171127
  Serious: Yes (Hospitalization)
  Sender: FDA-Public Use
  Company Number: AU-ABBVIE-17P-008-2062358-00

PATIENT
  Sex: Female

DRUGS (6)
  1. CRANBERRY. [Suspect]
     Active Substance: CRANBERRY
     Indication: PROPHYLAXIS
     Route: 048
  2. FRUSEMIDE [Suspect]
     Active Substance: FUROSEMIDE
     Indication: FLUID RETENTION
     Route: 048
  3. PARACETAMOL [Suspect]
     Active Substance: ACETAMINOPHEN
     Indication: PAIN
     Route: 048
  4. CRANBERRY. [Suspect]
     Active Substance: CRANBERRY
     Indication: URINARY TRACT INFECTION
  5. COLECALCIFEROL [Suspect]
     Active Substance: CHOLECALCIFEROL
     Indication: VITAMIN D
     Route: 048
  6. SODIUM VALPROATE [Suspect]
     Active Substance: VALPROATE SODIUM
     Indication: AFFECTIVE DISORDER
     Dosage: GASTRO-RESISTANT TABLET
     Route: 048

REACTIONS (1)
  - Hospitalisation [Unknown]
